FAERS Safety Report 24057768 (Version 1)
Quarter: 2024Q3

REPORT INFORMATION
  Report Type: Spontaneous
  Country: US (occurrence: US)
  Receive Date: 20240707
  Receipt Date: 20240707
  Transmission Date: 20241016
  Serious: Yes (Hospitalization)
  Sender: DR REDDYS
  Company Number: None

PATIENT
  Age: 18 Year
  Sex: Male

DRUGS (1)
  1. IBUPROFEN [Suspect]
     Active Substance: IBUPROFEN
     Indication: Upper respiratory tract infection
     Dosage: OVER-THE-COUNTER IBUPROFEN AT MANUFACTURER-RECOMMENDED DOSES (400-600 MG EVERY SIX TO EIGHT HOURS)

REACTIONS (4)
  - Dieulafoy^s vascular malformation [Recovered/Resolved]
  - Syncope [Recovered/Resolved]
  - Haemoglobin decreased [Recovered/Resolved]
  - Gastric mucosal lesion [Recovered/Resolved]
